FAERS Safety Report 9922489 (Version 1)
Quarter: 2014Q1

REPORT INFORMATION
  Report Type: Spontaneous
  Country: US (occurrence: None)
  Receive Date: 20140224
  Receipt Date: 20140224
  Transmission Date: 20141002
  Serious: Yes (Other)
  Sender: FDA-Public Use
  Company Number: None

PATIENT
  Age: 31 Year
  Sex: Male
  Weight: 113.4 kg

DRUGS (1)
  1. KLONOPIN [Suspect]
     Indication: INSOMNIA
     Dosage: 12 YEARS PLUS
     Route: 048

REACTIONS (1)
  - Withdrawal syndrome [None]
